FAERS Safety Report 21085268 (Version 1)
Quarter: 2022Q3

REPORT INFORMATION
  Report Type: Spontaneous
  Country: US (occurrence: US)
  Receive Date: 20220714
  Receipt Date: 20220714
  Transmission Date: 20221026
  Serious: Yes (Death, Hospitalization, Other)
  Sender: FDA-Public Use
  Company Number: US-BRISTOL-MYERS SQUIBB COMPANY-2022-068750

PATIENT
  Age: 90 Year
  Sex: Female

DRUGS (2)
  1. POMALYST [Suspect]
     Active Substance: POMALIDOMIDE
     Indication: Plasma cell myeloma
     Route: 048
     Dates: start: 20220316, end: 20220518
  2. WARFARIN [Concomitant]
     Active Substance: WARFARIN
     Indication: Atrial fibrillation

REACTIONS (4)
  - Acute kidney injury [Fatal]
  - Cardiac failure congestive [Fatal]
  - Malignant neoplasm progression [Unknown]
  - Prescribed underdose [Unknown]

NARRATIVE: CASE EVENT DATE: 20220524
